FAERS Safety Report 10718267 (Version 2)
Quarter: 2015Q1

REPORT INFORMATION
  Report Type: Spontaneous
  Country: US (occurrence: US)
  Receive Date: 20150118
  Receipt Date: 20150220
  Transmission Date: 20150721
  Serious: Yes (Death)
  Sender: FDA-Public Use
  Company Number: US-ROCHE-1522241

PATIENT
  Age: 48 Year
  Sex: Female
  Weight: 113.95 kg

DRUGS (4)
  1. XELODA [Suspect]
     Active Substance: CAPECITABINE
     Indication: BREAST CANCER
     Route: 048
     Dates: start: 20120821, end: 20121029
  2. LISINOPRIL. [Concomitant]
     Active Substance: LISINOPRIL
     Dosage: 20
     Route: 048
  3. 5-FU [Concomitant]
     Active Substance: FLUOROURACIL
  4. ATENOLOL. [Concomitant]
     Active Substance: ATENOLOL
     Indication: HYPERTENSION
     Dosage: 50
     Route: 048

REACTIONS (6)
  - Asthenia [Unknown]
  - Pleural effusion [Unknown]
  - Fatigue [Unknown]
  - Acute hepatic failure [Fatal]
  - Portal vein thrombosis [Fatal]
  - Hepatic necrosis [Fatal]

NARRATIVE: CASE EVENT DATE: 20121028
